FAERS Safety Report 7704656-7 (Version None)
Quarter: 2011Q3

REPORT INFORMATION
  Report Type: 
  Country: None (occurrence: None)
  Receive Date: 20110823
  Receipt Date: 20110815
  Transmission Date: 20111222
  Serious: Yes (Hospitalization)
  Sender: FDA-Public Use
  Company Number: US-GLAXOSMITHKLINE-B0741523A

PATIENT
  Age: 75 Year
  Sex: Male

DRUGS (1)
  1. AVANDIA [Suspect]
     Indication: DIABETES MELLITUS
     Dosage: 4MG TWICE PER DAY
     Route: 048
     Dates: start: 20030301, end: 20100701

REACTIONS (6)
  - ANAEMIA [None]
  - PNEUMONIA [None]
  - MYOCARDIAL INFARCTION [None]
  - CARDIOPULMONARY FAILURE [None]
  - CARDIAC FAILURE CONGESTIVE [None]
  - TRANSFUSION [None]
